FAERS Safety Report 16870163 (Version 3)
Quarter: 2019Q4

REPORT INFORMATION
  Report Type: Spontaneous
  Country: US (occurrence: US)
  Receive Date: 20190930
  Receipt Date: 20191028
  Transmission Date: 20200122
  Serious: Yes (Hospitalization)
  Sender: FDA-Public Use
  Company Number: US-VERTEX PHARMACEUTICALS-2019-009317

PATIENT
  Age: 23 Year
  Sex: Female
  Weight: 56 kg

DRUGS (19)
  1. AZITHROMYCIN ANHYDROUS. [Concomitant]
     Active Substance: AZITHROMYCIN ANHYDROUS
     Dosage: 1 DOSAGE FORM 3 TIMES WEEKLY (MON, WED, FRI)
     Route: 048
  2. ALBUTEROL HFA [Concomitant]
     Active Substance: ALBUTEROL SULFATE
     Indication: WHEEZING
     Dosage: 2 PUFFS EVERY 4 HOURS
  3. SODIUM CHLORIDE. [Concomitant]
     Active Substance: SODIUM CHLORIDE
     Dosage: 500 MG, QD
     Route: 042
  4. PULMOZYME [Concomitant]
     Active Substance: DORNASE ALFA
     Dosage: 2.5 MG, BID
     Route: 055
  5. BUDESONIDE. [Concomitant]
     Active Substance: BUDESONIDE
     Dosage: 1 DOSAGE FORM, BID
  6. FLUOXETINE [Concomitant]
     Active Substance: FLUOXETINE HYDROCHLORIDE
     Dosage: 1 DOSAGE FORM, QD
     Route: 048
  7. FLUTICASONE. [Concomitant]
     Active Substance: FLUTICASONE
     Dosage: 1 DOSAGE FORM (SPRAY), QD
     Route: 055
  8. FLUTICASONE;SALMETEROL [Concomitant]
     Active Substance: FLUTICASONE PROPIONATE\SALMETEROL XINAFOATE
     Dosage: 1 PUFF, BID
     Route: 055
  9. CAYSTON [Concomitant]
     Active Substance: AZTREONAM
     Dosage: 75 MILLIGRAM, 14 DAYS ON 14 DAYS OFF
  10. AMYLASE/LIPASE/PROTEASE [Concomitant]
     Active Substance: AMYLASE\LIPASE\PROTEASE
     Dosage: 3 DOSAGE FORM, QID
     Route: 048
  11. PREDNISONE [PREDNISONE ACETATE] [Concomitant]
     Active Substance: PREDNISONE ACETATE
     Dosage: 1 DOSAGE FORM, QD,WITH BREAKFAST
     Route: 048
  12. VITAMIN D [ERGOCALCIFEROL] [Concomitant]
     Active Substance: ERGOCALCIFEROL
     Dosage: 50000 INTERNATIONAL UNIT, QW
     Route: 048
  13. RANITIDINE [RANITIDINE HYDROCHLORIDE] [Concomitant]
     Active Substance: RANITIDINE
     Dosage: 150 MG, BID
     Route: 048
  14. ALBUTEROL [SALBUTAMOL] [Concomitant]
     Active Substance: ALBUTEROL
     Dosage: 3 MILLILITER, TID
     Route: 055
  15. LORATADINE. [Concomitant]
     Active Substance: LORATADINE
     Dosage: 1 DOSAGE FORM, QD, NIGHTLY
     Route: 048
  16. HYPERTONIC SALINE SOLUTION [Concomitant]
     Active Substance: SODIUM CHLORIDE
     Dosage: UNK, BID
  17. SYMDEKO [Suspect]
     Active Substance: IVACAFTOR\TEZACAFTOR
     Indication: CYSTIC FIBROSIS
     Dosage: 100MG TEZACAFTOR/150MG IVACAFTOR AM; 150MG IVACAFTOR PM
     Route: 048
     Dates: start: 20180410
  18. ONDANSETRON [ONDANSETRON HYDROCHLORIDE] [Concomitant]
     Indication: NAUSEA
     Dosage: 1 DOSAGE FORM, EVERY 8 HOURS
     Route: 048
  19. NUTREN 1.5 [Concomitant]
     Active Substance: DIETARY SUPPLEMENT
     Dosage: 3 DOSAGE FORM (CANS), QD
     Route: 048

REACTIONS (1)
  - Infective pulmonary exacerbation of cystic fibrosis [Recovered/Resolved]

NARRATIVE: CASE EVENT DATE: 20190916
